FAERS Safety Report 10228963 (Version 1)
Quarter: 2014Q2

REPORT INFORMATION
  Report Type: Spontaneous
  Country: CA (occurrence: CA)
  Receive Date: 20140610
  Receipt Date: 20140610
  Transmission Date: 20141212
  Serious: Yes (Hospitalization)
  Sender: FDA-Public Use
  Company Number: CA-B.I. PHARMACEUTICALS,INC./RIDGEFIELD-2014-BI-25289CN

PATIENT
  Age: 74 Year
  Sex: Female
  Weight: 58 kg

DRUGS (9)
  1. MICARDIS [Suspect]
     Indication: PRODUCT USED FOR UNKNOWN INDICATION
     Dosage: 80 MG
     Route: 048
  2. LASIX [Suspect]
     Indication: PRODUCT USED FOR UNKNOWN INDICATION
     Dosage: 40 MG
     Route: 048
  3. ASPIRIN [Concomitant]
     Dosage: 325 MG
     Route: 048
  4. CELEXA [Concomitant]
     Dosage: 20 MG
     Route: 048
  5. LITHIUM [Concomitant]
     Route: 065
  6. PREMARIN [Concomitant]
     Dosage: 0.625 MG
     Route: 048
  7. SENOKOT [Concomitant]
     Dosage: 8.6 MG
     Route: 048
  8. SYNTHROID [Concomitant]
     Dosage: 0.1 MG
     Route: 048
  9. TEGRETOL [Concomitant]
     Dosage: 800 MG
     Route: 048

REACTIONS (12)
  - Asthenia [Unknown]
  - Bradycardia [Unknown]
  - Cardiac arrest [Unknown]
  - Depressed level of consciousness [Unknown]
  - Diarrhoea [Unknown]
  - Drug level increased [Unknown]
  - Gait disturbance [Unknown]
  - Hyperreflexia [Unknown]
  - Myoclonus [Unknown]
  - Nausea [Unknown]
  - Renal impairment [Unknown]
  - Vomiting [Unknown]
